FAERS Safety Report 5283923-3 (Version None)
Quarter: 2007Q1

REPORT INFORMATION
  Report Type: 
  Country: None (occurrence: None)
  Receive Date: 20070327
  Receipt Date: 20070312
  Transmission Date: 20070707
  Serious: Yes (Hospitalization, Other)
  Sender: FDA-Public Use
  Company Number: 2006S1011733

PATIENT
  Age: 67 Year
  Sex: Male
  Weight: 86.1834 kg

DRUGS (10)
  1. PROBENECID [Suspect]
     Indication: GOUT
     Dosage: SEE IMAGE
     Route: 048
     Dates: start: 20060506, end: 20060513
  2. PROBENECID [Suspect]
     Indication: GOUT
     Dosage: SEE IMAGE
     Route: 048
     Dates: start: 20060513, end: 20060519
  3. PROBENECID [Suspect]
     Indication: GOUT
     Dosage: SEE IMAGE
     Route: 048
     Dates: start: 20060501, end: 20061107
  4. PROBENECID [Suspect]
     Indication: GOUT
     Dosage: SEE IMAGE
     Route: 048
     Dates: start: 20060519
  5. CORTISONE ACETATE [Suspect]
     Indication: GOUT
     Dosage: X1
     Dates: start: 20060501, end: 20061201
  6. PROBENECID [Suspect]
     Indication: GOUT
     Dosage: 500 MG DAILY ORAL; 250 MG DAILY ORAL
     Route: 048
     Dates: start: 20061107, end: 20061201
  7. PROBENECID [Suspect]
     Indication: GOUT
     Dosage: 500 MG DAILY ORAL; 250 MG DAILY ORAL
     Route: 048
     Dates: start: 20061201
  8. WARFARIN SODIUM [Concomitant]
  9. AMLODIPINE [Concomitant]
  10. ACETYLSALICYLIC ACID SRT [Concomitant]

REACTIONS (7)
  - ATRIAL FIBRILLATION [None]
  - BACK PAIN [None]
  - CEREBROVASCULAR ACCIDENT [None]
  - EPIDIDYMITIS [None]
  - IATROGENIC INJURY [None]
  - NERVE INJURY [None]
  - PAIN IN EXTREMITY [None]
